FAERS Safety Report 7309952-3 (Version None)
Quarter: 2011Q1

REPORT INFORMATION
  Report Type: 
  Country: None (occurrence: None)
  Receive Date: 20110224
  Receipt Date: 20110211
  Transmission Date: 20110831
  Serious: Yes (Death, Other)
  Sender: FDA-Public Use
  Company Number: US-CELGENEUS-163-20785-10120372

PATIENT
  Sex: Male

DRUGS (2)
  1. HYDREA [Concomitant]
     Indication: MYELOFIBROSIS
     Route: 048
     Dates: start: 20100714
  2. THALOMID [Suspect]
     Indication: MYELOFIBROSIS
     Route: 048
     Dates: start: 20101022

REACTIONS (3)
  - DEATH [None]
  - ANAEMIA [None]
  - THROMBOCYTOPENIA [None]
